FAERS Safety Report 17201323 (Version 1)
Quarter: 2019Q4

REPORT INFORMATION
  Report Type: Spontaneous
  Country: CH (occurrence: CH)
  Receive Date: 20191226
  Receipt Date: 20191226
  Transmission Date: 20200122
  Serious: Yes (Life-Threatening, Hospitalization)
  Sender: FDA-Public Use
  Company Number: CH-ASCEND THERAPEUTICS US, LLC-2077563

PATIENT
  Age: 82 Year
  Sex: Female

DRUGS (3)
  1. ESTROGEL [Suspect]
     Active Substance: ESTRADIOL
     Indication: PRODUCT USED FOR UNKNOWN INDICATION
     Route: 067
  2. PRODAFEM (MEDROXYPROGESTERONE ACETATE), UNKNOWN [Suspect]
     Active Substance: MEDROXYPROGESTERONE ACETATE
  3. VAGIFEM [Suspect]
     Active Substance: ESTRADIOL
     Route: 065

REACTIONS (3)
  - Dyspnoea [Unknown]
  - Pulmonary embolism [Not Recovered/Not Resolved]
  - Incorrect route of product administration [None]

NARRATIVE: CASE EVENT DATE: 20191114
